FAERS Safety Report 11398765 (Version 1)
Quarter: 2015Q3

REPORT INFORMATION
  Report Type: Spontaneous
  Country: US (occurrence: None)
  Receive Date: 20150818
  Receipt Date: 20150818
  Transmission Date: 20151125
  Serious: Yes (Other)
  Sender: FDA-Public Use
  Company Number: None

PATIENT
  Age: 60 Year
  Sex: Female
  Weight: 52.16 kg

DRUGS (10)
  1. ATORVASTATIN [Concomitant]
     Active Substance: ATORVASTATIN
  2. METFORMIN [Concomitant]
     Active Substance: METFORMIN HYDROCHLORIDE
  3. SERTRALINE [Concomitant]
     Active Substance: SERTRALINE HYDROCHLORIDE
  4. ALENDRONTE SODIUM [Concomitant]
  5. CALCIUM +D [Concomitant]
     Active Substance: CALCIUM\VITAMIN D
  6. FENOFIBIC ACID [Concomitant]
  7. WOMEN ONCE A DAY [Concomitant]
  8. FORTEO [Suspect]
     Active Substance: TERIPARATIDE
     Indication: BONE DENSITY ABNORMAL
     Dosage: FAT UNDER  SKIN INJECTION
     Route: 042
  9. SYNTHROID [Concomitant]
     Active Substance: LEVOTHYROXINE SODIUM
  10. CALCIUM SUPPLEMENT + VITAMIN D [Concomitant]

REACTIONS (3)
  - Drug ineffective [None]
  - Bone disorder [None]
  - Condition aggravated [None]
